FAERS Safety Report 17967127 (Version 3)
Quarter: 2020Q3

REPORT INFORMATION
  Report Type: Spontaneous
  Country: NL (occurrence: FR)
  Receive Date: 20200701
  Receipt Date: 20200810
  Transmission Date: 20201103
  Serious: Yes (Other)
  Sender: FDA-Public Use
  Company Number: FR-ASTELLAS-2020US021944

PATIENT
  Age: 49 Year
  Sex: Male

DRUGS (7)
  1. PROGRAF [Interacting]
     Active Substance: TACROLIMUS
     Indication: HEART TRANSPLANT
     Dosage: 2 MG, TWICE DAILY (2 MG THE MORNING AND 2 MG IN EVENING)
     Route: 048
     Dates: start: 201611
  2. ISAVUCONAZOLE [Suspect]
     Active Substance: ISAVUCONAZOLE
     Indication: FUNGAL SKIN INFECTION
     Dosage: 200 MG, EVERY 8 HOURS (INITIAL LOADING DOSE OVER 48 H)
     Route: 048
     Dates: start: 20170503, end: 20170504
  3. ISAVUCONAZOLE [Interacting]
     Active Substance: ISAVUCONAZOLE
     Indication: PHAEOHYPHOMYCOSIS
     Route: 048
     Dates: start: 20170505, end: 20170530
  4. PREDNISONE. [Suspect]
     Active Substance: PREDNISONE
     Indication: HEART TRANSPLANT
     Dosage: 20 MG, ONCE DAILY (EVERY MORNING)
     Route: 065
  5. MYCOPHENOLATE MOFETIL. [Suspect]
     Active Substance: MYCOPHENOLATE MOFETIL
     Indication: HEART TRANSPLANT
     Dosage: 500 MG, THRICE DAILY (EVERY MORNING, NOON AND EVENING)
     Route: 065
  6. PROGRAF [Interacting]
     Active Substance: TACROLIMUS
     Dosage: 1.5 MG, TWICE DAILY (1.5 MG IN MORNING AND 1.5 MG IN EVENING)
     Route: 048
  7. ISAVUCONAZOLE [Interacting]
     Active Substance: ISAVUCONAZOLE
     Route: 048
     Dates: end: 20180815

REACTIONS (10)
  - Drug ineffective for unapproved indication [Unknown]
  - Abscess limb [Recovered/Resolved]
  - Abscess fungal [Recovered/Resolved]
  - Renal impairment [Recovered/Resolved]
  - Drug interaction [Recovered/Resolved]
  - Fungal skin infection [Recovered/Resolved]
  - Phaeohyphomycosis [Recovered/Resolved]
  - Drug level increased [Recovered/Resolved]
  - Diarrhoea [Recovered/Resolved]
  - Product availability issue [Unknown]

NARRATIVE: CASE EVENT DATE: 201702
